FAERS Safety Report 17263200 (Version 1)
Quarter: 2020Q1

REPORT INFORMATION
  Report Type: Spontaneous
  Country: US (occurrence: US)
  Receive Date: 20200111
  Receipt Date: 20200111
  Transmission Date: 20200409
  Serious: Yes (Disabling, Other)
  Sender: FDA-Public Use
  Company Number: None

PATIENT
  Age: 55 Year
  Sex: Male
  Weight: 112.5 kg

DRUGS (5)
  1. PRIME LABS PRIME TEST TESTOSTERONE BOOSTER [Concomitant]
  2. FINASTERIDE 5MG [Suspect]
     Active Substance: FINASTERIDE
     Indication: ALOPECIA
     Dosage: ?          QUANTITY:30 TABLET(S);?
     Route: 048
     Dates: start: 20191114, end: 20200109
  3. SPRING VALLEY BIOTIN [Concomitant]
  4. PAISLE BOTANIX HAIR THICKENING SPRAY BIOTIN [Concomitant]
  5. EQUATE HAIR REGROWTH TREATMENT [Concomitant]
     Active Substance: MINOXIDIL

REACTIONS (5)
  - Skin lesion [None]
  - Erectile dysfunction [None]
  - Ejaculation disorder [None]
  - Weight increased [None]
  - Rash pruritic [None]

NARRATIVE: CASE EVENT DATE: 20200109
